FAERS Safety Report 13339656 (Version 4)
Quarter: 2017Q3

REPORT INFORMATION
  Report Type: Spontaneous
  Country: US (occurrence: US)
  Receive Date: 20170315
  Receipt Date: 20170828
  Transmission Date: 20171127
  Serious: Yes (Other)
  Sender: FDA-Public Use
  Company Number: US-TEVA-749127USA

PATIENT
  Age: 75 Year
  Sex: Male

DRUGS (5)
  1. METFORMIN [Suspect]
     Active Substance: METFORMIN HYDROCHLORIDE
     Indication: PRODUCT USED FOR UNKNOWN INDICATION
     Route: 065
     Dates: end: 201612
  2. XTANDI [Suspect]
     Active Substance: ENZALUTAMIDE
     Dosage: 160 MG ONCE DAILY
     Route: 048
     Dates: start: 201402
  3. XTANDI [Suspect]
     Active Substance: ENZALUTAMIDE
     Dosage: 160 MG ONCE DAILY
     Route: 048
     Dates: start: 2015
  4. GABAPENTIN. [Suspect]
     Active Substance: GABAPENTIN
     Indication: PRODUCT USED FOR UNKNOWN INDICATION
     Route: 065
     Dates: end: 201702
  5. XTANDI [Suspect]
     Active Substance: ENZALUTAMIDE
     Indication: PROSTATE CANCER
     Dosage: 160 MG ONCE DAILY
     Route: 048

REACTIONS (14)
  - Movement disorder [Unknown]
  - Joint dislocation [Recovered/Resolved]
  - Diarrhoea [Recovered/Resolved]
  - Hot flush [Recovering/Resolving]
  - Joint swelling [Unknown]
  - Vertigo [Not Recovered/Not Resolved]
  - Upper limb fracture [Recovered/Resolved]
  - Rib fracture [Unknown]
  - Influenza like illness [Unknown]
  - Pain [Unknown]
  - Fall [Recovered/Resolved]
  - Nasopharyngitis [Unknown]
  - Dizziness [Not Recovered/Not Resolved]
  - Nausea [Recovered/Resolved]

NARRATIVE: CASE EVENT DATE: 201611
